FAERS Safety Report 10027366 (Version 1)
Quarter: 2014Q1

REPORT INFORMATION
  Report Type: Spontaneous
  Country: PL (occurrence: PL)
  Receive Date: 20140321
  Receipt Date: 20140321
  Transmission Date: 20141002
  Serious: Yes (Other)
  Sender: FDA-Public Use
  Company Number: PHHY2014PL030629

PATIENT
  Sex: Female
  Weight: 61 kg

DRUGS (2)
  1. METHOTREXATE [Suspect]
     Indication: RHEUMATOID ARTHRITIS
     Dosage: 20 MG, QW
     Route: 050
     Dates: start: 2007
  2. METHOTREXATE [Suspect]
     Dosage: 20 MG, QW
     Route: 048
     Dates: start: 2011, end: 201306

REACTIONS (2)
  - Cystitis [Recovered/Resolved]
  - Depression [Recovered/Resolved]
